FAERS Safety Report 10224481 (Version 1)
Quarter: 2014Q2

REPORT INFORMATION
  Report Type: Spontaneous
  Country: ES (occurrence: ES)
  Receive Date: 20140609
  Receipt Date: 20140609
  Transmission Date: 20141212
  Serious: Yes (Death, Hospitalization)
  Sender: FDA-Public Use
  Company Number: PHHY2014ES069093

PATIENT
  Age: 61 Year
  Sex: Male

DRUGS (9)
  1. SANDIMMUNE NEORAL [Suspect]
     Indication: RENAL TRANSPLANT
     Dosage: 125 MG, QD
     Route: 048
     Dates: start: 1992, end: 20130728
  2. CELLCEPT [Suspect]
     Indication: RENAL TRANSPLANT
     Dosage: 1000 MG, QD
     Route: 048
     Dates: start: 2001, end: 20130728
  3. RANITIDINA [Concomitant]
     Indication: PROPHYLAXIS AGAINST GASTROINTESTINAL ULCER
     Dosage: 150 MG, QD
     Route: 048
     Dates: start: 20110509
  4. PREDNISONA [Concomitant]
     Indication: RENAL TRANSPLANT
     Dosage: 5 MG, QD
     Route: 048
     Dates: start: 1992
  5. MASTICAL [Concomitant]
     Dosage: 750 MG, BID
     Route: 048
     Dates: start: 2012
  6. MIMPARA [Concomitant]
     Dosage: UNK
     Route: 048
     Dates: start: 1992
  7. PLENDIL [Concomitant]
     Dosage: 5 MG, QD
     Route: 048
     Dates: start: 2011
  8. RENITEC [Concomitant]
     Indication: HYPERTENSION
     Dosage: 20 MG, QD
     Route: 048
     Dates: start: 1992
  9. ZYLORIC [Concomitant]
     Dosage: 100 MG, QD
     Route: 048
     Dates: start: 2012

REACTIONS (1)
  - Lymphoproliferative disorder [Fatal]
